FAERS Safety Report 6853264-9 (Version None)
Quarter: 2010Q3

REPORT INFORMATION
  Report Type: 
  Country: None (occurrence: None)
  Receive Date: 20100717
  Receipt Date: 20080108
  Transmission Date: 20110219
  Serious: No
  Sender: FDA-Public Use
  Company Number: US-PFIZER INC-2007100622

PATIENT
  Sex: Male
  Weight: 88.6 kg

DRUGS (2)
  1. CHANTIX [Suspect]
     Indication: SMOKING CESSATION THERAPY
     Dates: start: 20071001
  2. ANTIACID [Concomitant]
     Indication: DYSPEPSIA

REACTIONS (3)
  - CIRCADIAN RHYTHM SLEEP DISORDER [None]
  - DYSGEUSIA [None]
  - IRRITABILITY [None]
